FAERS Safety Report 9114544 (Version 1)
Quarter: 2013Q1

REPORT INFORMATION
  Report Type: Spontaneous
  Country: US (occurrence: US)
  Receive Date: 20130208
  Receipt Date: 20130208
  Transmission Date: 20140127
  Serious: No
  Sender: FDA-Public Use
  Company Number: US-PFIZER INC-2013053222

PATIENT
  Age: 75 Year
  Sex: Female
  Weight: 87.08 kg

DRUGS (2)
  1. LYRICA [Suspect]
     Indication: FIBROMYALGIA
     Dosage: 150 MG, 3X/DAY
     Route: 048
     Dates: start: 2009
  2. LYRICA [Suspect]
     Indication: NERVE INJURY

REACTIONS (1)
  - Weight increased [Unknown]
